FAERS Safety Report 16381393 (Version 1)
Quarter: 2019Q2

REPORT INFORMATION
  Report Type: Spontaneous
  Country: US (occurrence: US)
  Receive Date: 20190603
  Receipt Date: 20190603
  Transmission Date: 20190711
  Serious: No
  Sender: FDA-Public Use
  Company Number: US-JNJFOC-20190522372

PATIENT
  Age: 68 Year
  Sex: Female

DRUGS (2)
  1. WOMENS ROGAINE EXTRA STRENGTH [Suspect]
     Active Substance: MINOXIDIL
     Route: 061
  2. WOMENS ROGAINE EXTRA STRENGTH [Suspect]
     Active Substance: MINOXIDIL
     Indication: ALOPECIA
     Route: 061

REACTIONS (5)
  - Product formulation issue [Unknown]
  - Alopecia [Unknown]
  - Hair texture abnormal [Unknown]
  - Hair colour changes [Unknown]
  - Poor quality product administered [Unknown]
